FAERS Safety Report 8564893-9 (Version None)
Quarter: 2012Q3

REPORT INFORMATION
  Report Type: 
  Country: None (occurrence: None)
  Receive Date: 20120803
  Receipt Date: 20120724
  Transmission Date: 20120928
  Serious: Yes (Other)
  Sender: FDA-Public Use
  Company Number: US-SANOFI-AVENTIS-2011SA084772

PATIENT
  Age: 42 Year
  Sex: Male

DRUGS (2)
  1. CLOMIPHENE CITRATE [Suspect]
     Route: 065
  2. TESTOSTERONE [Concomitant]
     Route: 030

REACTIONS (3)
  - POLYCYTHAEMIA VERA [None]
  - OFF LABEL USE [None]
  - HAEMATOCRIT INCREASED [None]
